FAERS Safety Report 24366519 (Version 1)
Quarter: 2024Q3

REPORT INFORMATION
  Report Type: Spontaneous
  Country: US (occurrence: None)
  Receive Date: 20240926
  Receipt Date: 20240926
  Transmission Date: 20241017
  Serious: Yes (Disabling, Other)
  Sender: Public
  Company Number: None

PATIENT
  Age: 42 Year
  Sex: Male
  Weight: 91.35 kg

DRUGS (1)
  1. FINASTERIDE [Suspect]
     Active Substance: FINASTERIDE
     Indication: Alopecia
     Dosage: OTHER QUANTITY : 1 TABLET(S);?FREQUENCY : DAILY;?
     Route: 048
     Dates: start: 20240301, end: 20240905

REACTIONS (4)
  - Depression [None]
  - Anxiety [None]
  - Gastrooesophageal reflux disease [None]
  - Chest pain [None]

NARRATIVE: CASE EVENT DATE: 20240905
